FAERS Safety Report 19393958 (Version 1)
Quarter: 2021Q2

REPORT INFORMATION
  Report Type: Spontaneous
  Country: US (occurrence: US)
  Receive Date: 20210609
  Receipt Date: 20210609
  Transmission Date: 20210717
  Serious: Yes (Other)
  Sender: FDA-Public Use
  Company Number: US-GLAXOSMITHKLINE-US2021GSK122423

PATIENT
  Sex: Male

DRUGS (4)
  1. ZANTAC [Suspect]
     Active Substance: RANITIDINE HYDROCHLORIDE
     Dosage: UNK, BID
     Route: 065
     Dates: start: 200901, end: 201910
  2. RANITIDINE. [Suspect]
     Active Substance: RANITIDINE
     Dosage: UNK UNK, BID
     Route: 065
     Dates: start: 200901, end: 201910
  3. RANITIDINE CAPSULE [Suspect]
     Active Substance: RANITIDINE
     Dosage: UNK, BID
     Route: 065
     Dates: start: 200901, end: 201910
  4. RANITIDINE. [Suspect]
     Active Substance: RANITIDINE
     Dosage: UNK, BID
     Route: 065
     Dates: start: 200901, end: 201910

REACTIONS (1)
  - Prostate cancer [Unknown]
